FAERS Safety Report 20450633 (Version 20)
Quarter: 2022Q3

REPORT INFORMATION
  Report Type: Report from Study
  Country: GT (occurrence: None)
  Receive Date: 20220209
  Receipt Date: 20220926
  Transmission Date: 20221026
  Serious: Yes (Life-Threatening, Hospitalization, Disabling)
  Sender: FDA-Public Use
  Company Number: GT-Eisai Medical Research-EC-2022-108169

PATIENT
  Age: 75 Year
  Sex: Female
  Weight: 53 kg

DRUGS (11)
  1. LENVATINIB [Suspect]
     Active Substance: LENVATINIB
     Indication: Clear cell renal cell carcinoma
     Dosage: STARTING DOSE AT 20 MG, FLUCTUATED DOSAGE
     Route: 048
     Dates: start: 20211130, end: 20211229
  2. LENVATINIB [Suspect]
     Active Substance: LENVATINIB
     Route: 048
     Dates: start: 20220111, end: 20220123
  3. LENVATINIB [Suspect]
     Active Substance: LENVATINIB
     Route: 048
     Dates: start: 20220329
  4. QUAVONLIMAB [Suspect]
     Active Substance: QUAVONLIMAB
     Indication: Clear cell renal cell carcinoma
     Dosage: QUAVONLIMAB (MK-1308) 25 MILLIGRAM AND PEMBROLIZUMAB (MK-3475) 400 MILLIGRAM
     Route: 041
     Dates: start: 20211130, end: 20211130
  5. PEMBROLIZUMAB [Suspect]
     Active Substance: PEMBROLIZUMAB
     Dosage: QUAVONLIMAB (MK-1308) 25 MILLIGRAM AND PEMBROLIZUMAB (MK-3475) 400 MILLIGRAM
     Route: 041
     Dates: start: 20220111, end: 20220111
  6. LEVOTHYROXINE SODIUM [Concomitant]
     Active Substance: LEVOTHYROXINE SODIUM
     Dates: start: 201901, end: 20220131
  7. EXFORGE HCT [Concomitant]
     Active Substance: AMLODIPINE BESYLATE\HYDROCHLOROTHIAZIDE\VALSARTAN
     Dates: start: 20211116, end: 20220131
  8. RUPATADINE [Concomitant]
     Active Substance: RUPATADINE
     Dates: start: 20220111, end: 20220128
  9. DERMACORTINE [Concomitant]
     Dates: start: 20220128, end: 20220208
  10. CETIRIZINE HYDROCHLORIDE [Concomitant]
     Active Substance: CETIRIZINE HYDROCHLORIDE
     Dates: start: 20220128, end: 20220208
  11. DEXKETOPROFEN [Concomitant]
     Active Substance: DEXKETOPROFEN
     Dates: start: 20220128, end: 20220203

REACTIONS (2)
  - Hyponatraemia [Recovered/Resolved]
  - Guillain-Barre syndrome [Recovered/Resolved]

NARRATIVE: CASE EVENT DATE: 20220131
